FAERS Safety Report 8594706-0 (Version None)
Quarter: 2012Q3

REPORT INFORMATION
  Report Type: 
  Country: None (occurrence: None)
  Receive Date: 20120815
  Receipt Date: 20120808
  Transmission Date: 20120928
  Serious: Yes (Other)
  Sender: FDA-Public Use
  Company Number: GB-AMGEN-GBRSP2012050256

PATIENT
  Age: 84 Year
  Sex: Female
  Weight: 61 kg

DRUGS (8)
  1. PHENOBARBITAL TAB [Concomitant]
     Indication: EPILEPSY
     Dosage: 60 MG, BID
     Route: 048
  2. CALCICHEW D3 [Concomitant]
     Indication: OSTEOPETROSIS
     Dosage: 1 UNK, UNK
     Route: 048
  3. RAMIPRIL [Concomitant]
     Indication: HYPERTENSION
     Route: 048
  4. FOLIC ACID [Concomitant]
     Dosage: 5 MG, UNK
     Route: 048
  5. PROLIA [Suspect]
     Indication: OSTEOPETROSIS
     Dosage: 60 MG, UNK
     Route: 058
     Dates: start: 20110629, end: 20120111
  6. BENDROFLUAZIDE [Concomitant]
     Indication: HYPERTENSION
     Dosage: 2.5 MG, UNK
     Route: 048
  7. PHENYTOIN [Concomitant]
     Indication: EPILEPSY
     Dosage: 200 MG, UNK
     Route: 048
  8. LEVOTHYROXINE SODIUM [Concomitant]
     Indication: HYPERTHYROIDISM
     Dosage: 200 MUG, UNK
     Route: 048

REACTIONS (2)
  - EYE ABSCESS [None]
  - SKIN INFECTION [None]
